FAERS Safety Report 14363818 (Version 2)
Quarter: 2018Q1

REPORT INFORMATION
  Report Type: Spontaneous
  Country: TR (occurrence: TR)
  Receive Date: 20180108
  Receipt Date: 20180122
  Transmission Date: 20180509
  Serious: Yes (Life-Threatening, Other)
  Sender: FDA-Public Use
  Company Number: TR-ABBVIE-18P-161-2215002-00

PATIENT
  Age: 32 Year
  Sex: Male
  Weight: 68 kg

DRUGS (3)
  1. AERIUS [Concomitant]
     Active Substance: DESLORATADINE
     Indication: RHINITIS ALLERGIC
     Route: 065
  2. KLACID MR [Suspect]
     Active Substance: CLARITHROMYCIN
     Indication: OROPHARYNGEAL PAIN
     Route: 048
     Dates: start: 20171218
  3. RINOCLENIL [Concomitant]
     Active Substance: BECLOMETHASONE
     Indication: RHINITIS ALLERGIC
     Route: 065

REACTIONS (7)
  - Personality change [Not Recovered/Not Resolved]
  - Stress [Recovered/Resolved]
  - Abdominal pain upper [Recovered/Resolved]
  - Headache [Recovered/Resolved]
  - Chest pain [Recovered/Resolved]
  - Diarrhoea [Recovered/Resolved]
  - Paraesthesia [Recovered/Resolved]

NARRATIVE: CASE EVENT DATE: 20171218
